FAERS Safety Report 8072331-8 (Version None)
Quarter: 2011Q4

REPORT INFORMATION
  Report Type: 
  Country: None (occurrence: None)
  Receive Date: 20111222
  Receipt Date: 20111007
  Transmission Date: 20120403
  Serious: Yes (Death)
  Sender: FDA-Public Use
  Company Number: UTC-010981

PATIENT
  Age: 63 Year
  Sex: Female
  Weight: 68.1 kg

DRUGS (4)
  1. TYVASO [Suspect]
     Indication: PULMONARY ARTERIAL HYPERTENSION
     Dosage: 18-54 MICROGRAMS (4 IN 1 D),INHALATION
     Route: 055
     Dates: start: 20100914
  2. ADCIRCA [Concomitant]
  3. TRACLEER [Concomitant]
  4. COUMADIN [Concomitant]

REACTIONS (1)
  - RIGHT VENTRICULAR FAILURE [None]
